FAERS Safety Report 10441319 (Version 1)
Quarter: 2014Q3

REPORT INFORMATION
  Report Type: Spontaneous
  Country: US (occurrence: None)
  Receive Date: 20140908
  Receipt Date: 20140908
  Transmission Date: 20150326
  Serious: Yes (Life-Threatening, Hospitalization)
  Sender: FDA-Public Use
  Company Number: None

PATIENT
  Age: 67 Year
  Sex: Male
  Weight: 68.95 kg

DRUGS (3)
  1. KEPPRA [Suspect]
     Active Substance: LEVETIRACETAM
     Indication: CONVULSION
     Dosage: BY MOUTH
     Route: 048
  2. ALLOPURINOL. [Concomitant]
     Active Substance: ALLOPURINOL
  3. OMEPRAZOLE. [Concomitant]
     Active Substance: OMEPRAZOLE

REACTIONS (9)
  - Weight decreased [None]
  - Pyrexia [None]
  - Skin exfoliation [None]
  - Tremor [None]
  - Pharyngeal oedema [None]
  - Stomatitis [None]
  - Oropharyngeal pain [None]
  - Rash generalised [None]
  - Chills [None]

NARRATIVE: CASE EVENT DATE: 201405
